FAERS Safety Report 5199731-8 (Version None)
Quarter: 2007Q1

REPORT INFORMATION
  Report Type: 
  Country: None (occurrence: None)
  Receive Date: 20070103
  Receipt Date: 20070103
  Transmission Date: 20070707
  Serious: Yes (Hospitalization)
  Sender: FDA-Public Use
  Company Number: None

PATIENT
  Age: 54 Year
  Sex: Female
  Weight: 68.0396 kg

DRUGS (1)
  1. NAFCILLIN SODIUM [Suspect]
     Indication: STAPHYLOCOCCAL BACTERAEMIA
     Dosage: 2 GM  EVERY 4 HOURS   IV
     Route: 042
     Dates: start: 20061229, end: 20061230

REACTIONS (6)
  - BREAST PAIN [None]
  - CHEST PAIN [None]
  - HYPOAESTHESIA [None]
  - INFUSION RELATED REACTION [None]
  - PAIN IN EXTREMITY [None]
  - SYNCOPE VASOVAGAL [None]
